FAERS Safety Report 24169175 (Version 1)
Quarter: 2024Q3

REPORT INFORMATION
  Report Type: Spontaneous
  Country: US (occurrence: None)
  Receive Date: 20240802
  Receipt Date: 20240802
  Transmission Date: 20241017
  Serious: No
  Sender: Public
  Company Number: None

PATIENT

DRUGS (4)
  1. NITROGLYCERIN [Suspect]
     Active Substance: NITROGLYCERIN
     Dosage: PATCH  TRANSDERMAL USE?
     Route: 061
  2. CLONIDINE [Suspect]
     Active Substance: CLONIDINE
     Dosage: PATCH  TRANSDERMAL SYSTEM?
     Route: 061
  3. NITROGLYCERIN [Suspect]
     Active Substance: NITROGLYCERIN
     Dosage: PATCH  TRANSDERMAL USE?
     Route: 061
  4. CLONIDINE [Suspect]
     Active Substance: CLONIDINE
     Dosage: PATCH TRANSDERMAL SYSTEM

REACTIONS (2)
  - Product packaging confusion [None]
  - Product label confusion [None]
